FAERS Safety Report 24879043 (Version 1)
Quarter: 2025Q1

REPORT INFORMATION
  Report Type: Spontaneous
  Country: US (occurrence: US)
  Receive Date: 20250123
  Receipt Date: 20250123
  Transmission Date: 20250409
  Serious: No
  Sender: CATALYST PHARMA
  Company Number: US-CATALYST PHARMACEUTICALS, INC-US-CATA-24-00380

PATIENT
  Age: 30 Year
  Sex: Female
  Weight: 63.492 kg

DRUGS (7)
  1. FIRDAPSE [Suspect]
     Active Substance: AMIFAMPRIDINE PHOSPHATE
     Indication: Congenital myasthenic syndrome
     Dosage: 1 TABLET, 3 TIMES DAILY THEN INCREASE BY1/2 TABLET EVERY 5-7 DAYS UNTIL MAX DOSE OF 6 TABLETS TOTAL
     Route: 048
     Dates: start: 20240429, end: 2024
  2. FIRDAPSE [Suspect]
     Active Substance: AMIFAMPRIDINE PHOSPHATE
     Dosage: 4 TABLETS A DAY IN DIVIDED DOSES (1 1/2 TABLET, THEN 1 TABLET THEN 1 1/2 TABLET)
     Route: 048
     Dates: start: 20240613
  3. PYRIDOSTIGMINE BROMIDE [Concomitant]
     Active Substance: PYRIDOSTIGMINE BROMIDE
     Indication: Congenital myasthenic syndrome
     Route: 065
  4. PYRIDOSTIGMINE BROMIDE EXTENDED RELEASE [Concomitant]
     Active Substance: PYRIDOSTIGMINE BROMIDE
     Indication: Congenital myasthenic syndrome
     Dosage: 180 MG, AT BEDTIME
     Route: 065
  5. PRIMATENE [Concomitant]
     Active Substance: EPHEDRINE HYDROCHLORIDE\GUAIFENESIN
     Indication: Congenital myasthenic syndrome
     Dosage: 2 TABLETS, 2 X DAY
     Route: 065
  6. LEXAPRO [Concomitant]
     Active Substance: ESCITALOPRAM OXALATE
     Indication: Depression
     Dosage: 5 MG DAILY
     Route: 065
  7. LEXAPRO [Concomitant]
     Active Substance: ESCITALOPRAM OXALATE
     Indication: Anxiety

REACTIONS (5)
  - Eye movement disorder [Not Recovered/Not Resolved]
  - Paraesthesia [Not Recovered/Not Resolved]
  - Paraesthesia oral [Not Recovered/Not Resolved]
  - Abdominal pain [Not Recovered/Not Resolved]
  - Off label use [Unknown]

NARRATIVE: CASE EVENT DATE: 20240429
